FAERS Safety Report 18936680 (Version 2)
Quarter: 2021Q4

REPORT INFORMATION
  Report Type: Spontaneous
  Country: US (occurrence: None)
  Receive Date: 20210224
  Receipt Date: 20211228
  Transmission Date: 20220304
  Serious: Yes (Other)
  Sender: FDA-Public Use
  Company Number: US-VISTAPHARM, INC.-VER202102-000776

PATIENT
  Age: 17 Year
  Sex: Male

DRUGS (2)
  1. MYCOPHENOLATE MOFETIL [Suspect]
     Active Substance: MYCOPHENOLATE MOFETIL
     Indication: Immunosuppression
     Dosage: UNKNOWN
     Route: 065
  2. TACROLIMUS [Concomitant]
     Active Substance: TACROLIMUS
     Indication: Immunosuppression
     Dosage: UNKNOWN (DECREASED GIVEN CONCERNS FOR TOXICITY ON DEVELOPING INCREASED LIVER FUNCTION TESTS/LFTS)
     Route: 065

REACTIONS (1)
  - Drug-induced liver injury [Recovered/Resolved]
